FAERS Safety Report 7178770-1 (Version None)
Quarter: 2010Q4

REPORT INFORMATION
  Report Type: 
  Country: None (occurrence: None)
  Receive Date: 20101209
  Receipt Date: 20101130
  Transmission Date: 20110411
  Serious: Yes (Death)
  Sender: FDA-Public Use
  Company Number: MSER20100033

PATIENT
  Age: 26 Year
  Sex: Female
  Weight: 59 kg

DRUGS (5)
  1. MORPHINE SULFATE [Suspect]
     Indication: PAIN
     Dosage: 10 MG, ONCE, INTRAVENOUS; 5 MG, ONCE, INTRAVENOUS
     Route: 042
  2. SUFENTANIL (SUFENTANIL) (SUFENTANIL) [Concomitant]
  3. PROPOFOL (PROPOFOL) (150 MILLIGRAM, SOLUTION) (PROPOFOL) [Concomitant]
  4. DESFLURANE (DESFLURANE) (DESFLURANE) [Concomitant]
  5. NITROUS OXIDE IN 50% OXYGEN (OXYGEN, NITROUS OXIDE) (50 PERCENT) (OXYG [Concomitant]

REACTIONS (5)
  - APNOEA [None]
  - CARDIAC ARREST [None]
  - HYPOXIC-ISCHAEMIC ENCEPHALOPATHY [None]
  - OBSTRUCTIVE AIRWAYS DISORDER [None]
  - RESPIRATORY DEPRESSION [None]
